FAERS Safety Report 9666204 (Version 1)
Quarter: 2013Q4

REPORT INFORMATION
  Report Type: Report from Study
  Country: AR (occurrence: AR)
  Receive Date: 20131104
  Receipt Date: 20131104
  Transmission Date: 20140711
  Serious: Yes (Other)
  Sender: FDA-Public Use
  Company Number: PHHY2013AR124699

PATIENT
  Sex: Female

DRUGS (2)
  1. DIOVAN [Suspect]
     Indication: HYPERTENSION
     Dosage: 1 DF (320MG), DAILY
     Route: 048
     Dates: end: 2011
  2. DIOVAN [Suspect]
     Dosage: 0.5 DF (160MG), BID (IN THE MORNING AND AT NIGHT)
     Dates: start: 201303

REACTIONS (6)
  - Myocardial infarction [Recovered/Resolved]
  - Fall [Recovered/Resolved]
  - Head injury [Recovered/Resolved]
  - Blood pressure decreased [Recovered/Resolved]
  - Balance disorder [Recovered/Resolved]
  - Wrong technique in drug usage process [Unknown]
